FAERS Safety Report 7792470-6 (Version None)
Quarter: 2011Q4

REPORT INFORMATION
  Report Type: 
  Country: None (occurrence: None)
  Receive Date: 20111003
  Receipt Date: 20110920
  Transmission Date: 20120403
  Serious: Yes (Hospitalization, Other)
  Sender: FDA-Public Use
  Company Number: US-ELI_LILLY_AND_COMPANY-US201107000954

PATIENT
  Sex: Female

DRUGS (19)
  1. ZOSYN [Concomitant]
  2. ALBUTEROL [Concomitant]
     Dosage: UNK, TID
  3. IRON [Concomitant]
  4. LASIX [Concomitant]
     Dosage: 40 MG, UNK
  5. PREDNISONE [Concomitant]
     Dosage: 40 MG, UNK
  6. CIPROFLOXACIN [Concomitant]
  7. FOLIC ACID [Concomitant]
     Dosage: 1 MG, UNK
  8. POTASSIUM [Concomitant]
  9. FORTEO [Suspect]
     Dosage: 20 UG, QD
     Route: 065
  10. PREVACID [Concomitant]
     Dosage: 15 MG, UNK
  11. PULMICORT [Concomitant]
  12. COLACE [Concomitant]
  13. OXYCODONE HCL [Concomitant]
     Dosage: 5 MG, EVERY 4 HRS
  14. PAXIL [Concomitant]
     Dosage: 20 MG, UNK
  15. PERFOROMIST [Concomitant]
  16. FORTEO [Suspect]
     Indication: OSTEOPOROSIS
     Dosage: 20 UG, QD
     Route: 065
     Dates: start: 20110601
  17. PLAQUENIL [Concomitant]
  18. FORTEO [Suspect]
     Dosage: 20 UG, QD
     Route: 065
  19. MUCINEX [Concomitant]

REACTIONS (11)
  - CARDIAC FAILURE CONGESTIVE [None]
  - INSOMNIA [None]
  - INJECTION SITE HAEMATOMA [None]
  - PNEUMONIA [None]
  - SOMNOLENCE [None]
  - CONTUSION [None]
  - MALAISE [None]
  - HYPOAESTHESIA [None]
  - MEDICATION ERROR [None]
  - DRUG DOSE OMISSION [None]
  - PAIN [None]
